FAERS Safety Report 13189311 (Version 8)
Quarter: 2017Q3

REPORT INFORMATION
  Report Type: Report from Study
  Country: US (occurrence: US)
  Receive Date: 20170206
  Receipt Date: 20170720
  Transmission Date: 20171127
  Serious: Yes (Other)
  Sender: FDA-Public Use
  Company Number: US-PFIZER INC-2017050005

PATIENT
  Age: 84 Year
  Sex: Female

DRUGS (1)
  1. IBRANCE [Suspect]
     Active Substance: PALBOCICLIB
     Indication: BREAST CANCER METASTATIC
     Dosage: 125 MG, 1X/DAY
     Route: 048
     Dates: start: 20170111, end: 20170403

REACTIONS (18)
  - Pulmonary fibrosis [Not Recovered/Not Resolved]
  - Alopecia [Recovered/Resolved]
  - Diarrhoea [Unknown]
  - Gait disturbance [Recovered/Resolved]
  - Nasopharyngitis [Recovered/Resolved]
  - Stomatitis [Unknown]
  - Fatigue [Recovered/Resolved]
  - Hypersensitivity [Unknown]
  - Neoplasm progression [Unknown]
  - Thrombosis [Recovered/Resolved]
  - Leukopenia [Not Recovered/Not Resolved]
  - Cough [Not Recovered/Not Resolved]
  - Anaemia [Not Recovered/Not Resolved]
  - Feeling abnormal [Unknown]
  - Epistaxis [Recovered/Resolved]
  - Sinus congestion [Unknown]
  - Asthenia [Unknown]
  - Nasal discomfort [Recovered/Resolved]

NARRATIVE: CASE EVENT DATE: 20170111
